FAERS Safety Report 9196698 (Version 2)
Quarter: 2013Q2

REPORT INFORMATION
  Report Type: Spontaneous
  Country: CA (occurrence: CA)
  Receive Date: 20130328
  Receipt Date: 20130405
  Transmission Date: 20140414
  Serious: Yes (Hospitalization)
  Sender: FDA-Public Use
  Company Number: CA-AMGEN-CANSP2013020275

PATIENT
  Age: 32 Year
  Sex: Male

DRUGS (5)
  1. SENSIPAR [Suspect]
     Indication: RENAL FAILURE CHRONIC
     Dosage: UNK
     Dates: start: 20080916
  2. ALPHACALCIDOL [Concomitant]
  3. CALCIUM CARBONATE [Concomitant]
  4. VITAMIN D /00107901/ [Concomitant]
  5. EPREX PROTECS [Concomitant]

REACTIONS (2)
  - Device related infection [Not Recovered/Not Resolved]
  - Surgery [Unknown]
